FAERS Safety Report 22250156 (Version 1)
Quarter: 2023Q2

REPORT INFORMATION
  Report Type: Spontaneous
  Country: US (occurrence: None)
  Receive Date: 20230422
  Receipt Date: 20230422
  Transmission Date: 20230722
  Serious: No
  Sender: FDA-Public Use
  Company Number: None

PATIENT
  Sex: Male
  Weight: 82.1 kg

DRUGS (10)
  1. IBRANCE [Suspect]
     Active Substance: PALBOCICLIB
     Indication: Bone cancer
     Dosage: FREQUENCY : DAILY;?
     Route: 048
  2. CALCIUM [Concomitant]
     Active Substance: CALCIUM
  3. CALCIUM ACETATE AND MAGNESIUM CARBONATE [Concomitant]
  4. COMBIGAN [Concomitant]
     Active Substance: BRIMONIDINE TARTRATE\TIMOLOL MALEATE
  5. HYDROCHLOROTHIAZIDE [Concomitant]
     Active Substance: HYDROCHLOROTHIAZIDE
  6. LETROZOLE [Concomitant]
     Active Substance: LETROZOLE
  7. MULTIVITAMINS/FLUORIDE (with ADE) [Concomitant]
  8. VITAMIN D3 (SYN) [Concomitant]
  9. XGEVA [Concomitant]
     Active Substance: DENOSUMAB
  10. ZINC CHLORIDE [Concomitant]
     Active Substance: ZINC CHLORIDE

REACTIONS (1)
  - Therapy interrupted [None]
